FAERS Safety Report 15518123 (Version 2)
Quarter: 2018Q4

REPORT INFORMATION
  Report Type: Spontaneous
  Country: IT (occurrence: IT)
  Receive Date: 20181017
  Receipt Date: 20181022
  Transmission Date: 20190205
  Serious: Yes (Hospitalization)
  Sender: FDA-Public Use
  Company Number: IT-SA-2018SA286171

PATIENT
  Age: 62 Year
  Sex: Female

DRUGS (6)
  1. ZETIA [Concomitant]
     Active Substance: EZETIMIBE
     Indication: HYPERCHOLESTEROLAEMIA
  2. CONGESCOR [Concomitant]
     Active Substance: BISOPROLOL
  3. OLPRESS [Concomitant]
     Active Substance: OLMESARTAN MEDOXOMIL
  4. NEXIUM [ESOMEPRAZOLE SODIUM] [Concomitant]
  5. PLAVIX [Concomitant]
     Active Substance: CLOPIDOGREL BISULFATE
  6. PRALUENT [Suspect]
     Active Substance: ALIROCUMAB
     Dosage: 150 MG, 1X
     Route: 058
     Dates: start: 20180927, end: 20180927

REACTIONS (4)
  - Rash [Recovered/Resolved]
  - Papule [Recovered/Resolved]
  - Swelling face [Recovered/Resolved]
  - Epiglottic oedema [Recovered/Resolved]

NARRATIVE: CASE EVENT DATE: 20181004
